FAERS Safety Report 11486867 (Version 2)
Quarter: 2015Q3

REPORT INFORMATION
  Report Type: Report from Study
  Country: HU (occurrence: HU)
  Receive Date: 20150909
  Receipt Date: 20150918
  Transmission Date: 20151125
  Serious: Yes (Death, Hospitalization, Other)
  Sender: FDA-Public Use
  Company Number: PHHY2015HU106114

PATIENT
  Age: 62 Year
  Sex: Male

DRUGS (2)
  1. VENTOLINE EVOHALER [Concomitant]
     Active Substance: ALBUTEROL SULFATE
     Indication: PRODUCT USED FOR UNKNOWN INDICATION
     Dosage: UNK, PRN
     Route: 065
  2. ULTIBRO BREEZHALER [Suspect]
     Active Substance: GLYCOPYRRONIUM\INDACATEROL
     Indication: CHRONIC OBSTRUCTIVE PULMONARY DISEASE
     Dosage: 1 DF, QD
     Route: 055
     Dates: start: 20150407

REACTIONS (13)
  - Metastases to adrenals [Fatal]
  - Malignant neoplasm progression [Fatal]
  - Peritonitis [Fatal]
  - Intestinal perforation [Unknown]
  - Circulatory collapse [Fatal]
  - Ileus [Fatal]
  - Pneumonia [Fatal]
  - Impaired healing [Unknown]
  - Respiratory failure [Fatal]
  - Metastases to liver [Fatal]
  - Jaundice [Fatal]
  - Sepsis [Fatal]
  - Rectal neoplasm [Unknown]

NARRATIVE: CASE EVENT DATE: 20150627
